FAERS Safety Report 7241400-4 (Version None)
Quarter: 2011Q1

REPORT INFORMATION
  Report Type: 
  Country: None (occurrence: None)
  Receive Date: 20110110
  Receipt Date: 20101231
  Transmission Date: 20110831
  Serious: Yes (Other)
  Sender: FDA-Public Use
  Company Number: AECAN201000384

PATIENT
  Age: 63 Year
  Sex: Female
  Weight: 67 kg

DRUGS (8)
  1. GRAVOL (DIMENHYDRINATE) [Suspect]
     Indication: NAUSEA
     Dosage: IV
     Route: 042
     Dates: start: 20091113, end: 20091113
  2. WARFARIN [Concomitant]
  3. DEMEROL [Concomitant]
  4. MORPHINE [Concomitant]
  5. LEVOTHYROXINE [Concomitant]
  6. RANITIDINE [Concomitant]
  7. GAMUNEX [Suspect]
     Indication: STIFF-MAN SYNDROME
     Dosage: 67 GM;QM;IV
     Route: 042
     Dates: start: 20090601
  8. CELEBREX [Concomitant]

REACTIONS (6)
  - OFF LABEL USE [None]
  - NAUSEA [None]
  - SELF-MEDICATION [None]
  - CEREBRAL INFARCTION [None]
  - BLOOD VISCOSITY INCREASED [None]
  - INFUSION RELATED REACTION [None]
